FAERS Safety Report 5056622-0 (Version None)
Quarter: 2006Q2

REPORT INFORMATION
  Report Type: 
  Country: None (occurrence: None)
  Receive Date: 20060616
  Receipt Date: 20060515
  Transmission Date: 20061013
  Serious: No
  Sender: FDA-Public Use
  Company Number: 224301

PATIENT
  Age: 70 Year
  Sex: Female

DRUGS (4)
  1. AVASTIN [Suspect]
     Indication: RENAL CELL CARCINOMA STAGE UNSPECIFIED
     Dosage: 10 MG/KG, Q2W, INTRAVENOUS
     Route: 042
     Dates: start: 20050101
  2. ZOMETA [Concomitant]
  3. NEXAVAR [Concomitant]
  4. COUMADIN [Concomitant]

REACTIONS (2)
  - RASH [None]
  - SKIN ULCER [None]
